FAERS Safety Report 4720998-1 (Version None)
Quarter: 2005Q3

REPORT INFORMATION
  Report Type: 
  Country: None (occurrence: None)
  Receive Date: 20050720
  Receipt Date: 20050708
  Transmission Date: 20060218
  Serious: Yes (Hospitalization, Other)
  Sender: FDA-Public Use
  Company Number: 2004103901

PATIENT
  Age: 74 Year
  Sex: Female
  Weight: 55 kg

DRUGS (4)
  1. ALPRESS (PRAZOSIN) [Suspect]
     Indication: HYPERTENSION
     Dates: end: 20041101
  2. ARICEPT [Suspect]
     Indication: MEMORY IMPAIRMENT
     Dosage: 5 MG (5 MG, 1 IN 1 D), ORAL
     Route: 048
     Dates: start: 20040801, end: 20040901
  3. ISOPHANE INSULINE (ISOPHANE INSULIN) [Concomitant]
  4. RAMIPRIL [Concomitant]

REACTIONS (8)
  - BLOOD PRESSURE SYSTOLIC INCREASED [None]
  - CEREBRAL ATROPHY [None]
  - DEMENTIA [None]
  - DYSPNOEA [None]
  - HEART RATE DECREASED [None]
  - HYPOGLYCAEMIA [None]
  - MALAISE [None]
  - MEMORY IMPAIRMENT [None]
